FAERS Safety Report 5273406-9 (Version None)
Quarter: 2007Q1

REPORT INFORMATION
  Report Type: 
  Country: None (occurrence: None)
  Receive Date: 20070320
  Receipt Date: 20070314
  Transmission Date: 20070707
  Serious: Yes (Hospitalization)
  Sender: FDA-Public Use
  Company Number: 233905

PATIENT
  Age: 56 Year
  Sex: Female

DRUGS (12)
  1. RITUXAN [Suspect]
     Indication: RHEUMATOID ARTHRITIS
     Dosage: X2, INTRAVENOUS
     Route: 042
     Dates: start: 20061011, end: 20070110
  2. METHOTREXATE [Suspect]
     Indication: RHEUMATOID ARTHRITIS
     Dosage: 20 MG, 1/WEEK, ORAL
     Route: 048
     Dates: start: 20040405, end: 20061201
  3. PREDNISOLONE [Concomitant]
  4. FOLIC ACID [Concomitant]
  5. ALENDRONATE (ALENDRONATE SODIUM) [Concomitant]
  6. CALCICHEW DE (CALCIUM CARBONATE, CHOLECALCIFEROL) [Concomitant]
  7. AMITRIPRYLINE (AMITRIPTYLINE HYDROCHLORIDE) [Concomitant]
  8. KETOPROFEN [Concomitant]
  9. CO-PROXAMOL (ACETAMINOPHEN, PROPOXYPHENE HYDROCHLORIDE) [Concomitant]
  10. HRT NOS (HORMONES NOS) [Concomitant]
  11. LIVIAL [Concomitant]
  12. OMEPRAZOLE [Concomitant]

REACTIONS (10)
  - ATELECTASIS [None]
  - C-REACTIVE PROTEIN INCREASED [None]
  - CHEST PAIN [None]
  - HAEMOGLOBIN DECREASED [None]
  - HYPOXIA [None]
  - LYMPHOCYTE COUNT DECREASED [None]
  - NEUTROPHIL COUNT DECREASED [None]
  - PERICARDIAL RUB [None]
  - PLEURITIC PAIN [None]
  - TACHYCARDIA [None]
